FAERS Safety Report 8738728 (Version 3)
Quarter: 2012Q4

REPORT INFORMATION
  Report Type: 
  Country: FR (occurrence: FR)
  Receive Date: 20120823
  Receipt Date: 20121012
  Transmission Date: 20130627
  Serious: Yes (Hospitalization)
  Sender: FDA-Public Use
  Company Number: FR-PFIZER INC-2012201675

PATIENT
  Age: 58 Year
  Sex: Male

DRUGS (10)
  1. TRIFLUCAN [Suspect]
     Indication: OESOPHAGEAL CANDIDIASIS
     Dosage: 100 mg, 1x/day
     Route: 048
     Dates: start: 20120608, end: 20120630
  2. BACTRIM [Suspect]
     Indication: ANTIFUNGAL PROPHYLAXIS
     Dosage: 1 tablet, 1x/day
     Route: 048
     Dates: start: 20120612, end: 20120705
  3. ADIAZINE [Suspect]
     Indication: CEREBRAL TOXOPLASMOSIS
     Dosage: 6 g, 1x/day
     Route: 048
     Dates: start: 20120618, end: 20120709
  4. COMBIVIR [Suspect]
     Indication: HIV INFECTION
     Dosage: 1 DF, 2x/day
     Route: 048
     Dates: start: 20120627, end: 20120704
  5. NORVIR [Suspect]
     Indication: HIV INFECTION
     Dosage: 100 mg, 1x/day (1 DF)
     Route: 048
     Dates: start: 20120627, end: 20120704
  6. PREZISTA [Suspect]
     Indication: HIV INFECTION
     Dosage: 400 mg, 2x/day
     Route: 048
     Dates: start: 20120627, end: 20120704
  7. MALOCIDE [Concomitant]
     Indication: CEREBRAL TOXOPLASMOSIS
     Dosage: 2 DF, daily
     Dates: start: 20120618, end: 20120618
  8. MALOCIDE [Concomitant]
     Dosage: 75 mg, 1x/day (1.5 DF)
     Dates: start: 20120619, end: 20120627
  9. MALOCIDE [Concomitant]
     Dosage: 1 DF, 1x/day
     Dates: start: 20120628
  10. CALCIUM FOLINATE [Concomitant]
     Indication: CEREBRAL TOXOPLASMOSIS
     Dosage: 25 mg, daily
     Dates: start: 20120618

REACTIONS (6)
  - Drug reaction with eosinophilia and systemic symptoms [Recovering/Resolving]
  - Stevens-Johnson syndrome [Recovering/Resolving]
  - Myocarditis [Recovering/Resolving]
  - Blood sodium decreased [Unknown]
  - Haemoglobin decreased [Unknown]
  - Blood creatinine increased [Unknown]
